FAERS Safety Report 5665346-8 (Version None)
Quarter: 2008Q1

REPORT INFORMATION
  Report Type: 
  Country: None (occurrence: None)
  Receive Date: 20080314
  Receipt Date: 20071204
  Transmission Date: 20080703
  Serious: No
  Sender: FDA-Public Use
  Company Number: US-ABBOTT-07P-163-0427026-00

PATIENT
  Sex: Female
  Weight: 41.768 kg

DRUGS (4)
  1. HUMIRA [Suspect]
     Indication: PSORIATIC ARTHROPATHY
     Route: 058
     Dates: start: 20071111, end: 20071118
  2. ESOMEPRAZOLE MAGNESIUM [Concomitant]
     Indication: GASTROOESOPHAGEAL REFLUX DISEASE
     Route: 048
     Dates: start: 20061201
  3. PSORIATANE [Concomitant]
     Indication: PSORIASIS
     Route: 048
     Dates: start: 20050101
  4. RISEDRONATE SODIUM [Concomitant]
     Indication: RESORPTION BONE INCREASED
     Route: 048
     Dates: start: 20070101

REACTIONS (4)
  - ANAEMIA [None]
  - LIMB DISCOMFORT [None]
  - OEDEMA PERIPHERAL [None]
  - WEIGHT INCREASED [None]
